FAERS Safety Report 14712563 (Version 3)
Quarter: 2019Q2

REPORT INFORMATION
  Report Type: Spontaneous
  Country: None (occurrence: IT)
  Receive Date: 20180404
  Receipt Date: 20190610
  Transmission Date: 20190711
  Serious: Yes (Life-Threatening, Hospitalization, Other)
  Sender: FDA-Public Use
  Company Number: IT-IBIGEN-2018.03751

PATIENT
  Age: 70 Year
  Sex: Male

DRUGS (1)
  1. AMPICILLIN/SULBACTAM [Suspect]
     Active Substance: AMPICILLIN SODIUM\SULBACTAM SODIUM
     Indication: PROPHYLAXIS
     Route: 042

REACTIONS (4)
  - Kounis syndrome [Unknown]
  - Anaphylactic reaction [Unknown]
  - Syncope [Unknown]
  - Myocardial necrosis [Unknown]
